FAERS Safety Report 9202062 (Version 2)
Quarter: 2013Q2

REPORT INFORMATION
  Report Type: Spontaneous
  Country: JP (occurrence: None)
  Receive Date: 20130322
  Receipt Date: 20130405
  Transmission Date: 20140414
  Serious: Yes (Other)
  Sender: FDA-Public Use
  Company Number: 2013035094

PATIENT
  Age: 27 Month
  Sex: Female

DRUGS (2)
  1. IVIG [Suspect]
     Indication: KAWASAKI^S DISEASE
     Dosage: 1 G/KG/DAY X2 DAYS, IV(NOT OTHERWISE SPECIFIED)
     Route: 042
  2. FLURBIPROFEN (FLURBIPROFEN) [Concomitant]

REACTIONS (7)
  - Drug ineffective [None]
  - Off label use [None]
  - Myocardial depression [None]
  - Inappropriate schedule of drug administration [None]
  - Hepatic function abnormal [None]
  - Kawasaki^s disease [None]
  - Disease recurrence [None]
